FAERS Safety Report 6053851-4 (Version None)
Quarter: 2009Q1

REPORT INFORMATION
  Report Type: 
  Country: None (occurrence: None)
  Receive Date: 20090122
  Receipt Date: 20090116
  Transmission Date: 20090719
  Serious: Yes (Hospitalization)
  Sender: FDA-Public Use
  Company Number: POMP-11273

PATIENT
  Age: 13 Month
  Sex: Male
  Weight: 9.9 kg

DRUGS (16)
  1. MYOZYME [Suspect]
     Indication: GLYCOGEN STORAGE DISEASE TYPE II
     Dosage: 40 MG/KG, Q2Q, INTRAVENOUS 30 MG/KG, Q2W, INTRAVENOUS, 20 MG/KG, Q2W, INTRAVENOUS
     Route: 042
     Dates: start: 20060911, end: 20070401
  2. MYOZYME [Suspect]
     Indication: GLYCOGEN STORAGE DISEASE TYPE II
     Dosage: 40 MG/KG, Q2Q, INTRAVENOUS 30 MG/KG, Q2W, INTRAVENOUS, 20 MG/KG, Q2W, INTRAVENOUS
     Route: 042
     Dates: start: 20070509, end: 20070701
  3. MYOZYME [Suspect]
     Indication: GLYCOGEN STORAGE DISEASE TYPE II
     Dosage: 40 MG/KG, Q2Q, INTRAVENOUS 30 MG/KG, Q2W, INTRAVENOUS, 20 MG/KG, Q2W, INTRAVENOUS
     Route: 042
     Dates: start: 20070801
  4. RITUXIMAB (RITUXIMAB) [Concomitant]
  5. METHOTREXATE [Concomitant]
  6. IMMUNE GLOBULIN INTRAVENOUS (HUMAN) [Concomitant]
  7. BENADRYL [Concomitant]
  8. ACETAMINOPHEN [Concomitant]
  9. BUDESONIDE [Concomitant]
  10. LANSOPRAZOLE (LANZOPRAZOLE) [Concomitant]
  11. SIMETHICONE (SIMETHICONE) [Concomitant]
  12. IPRATROPIUM BROMIDE [Concomitant]
  13. ACETAMINOPHEN [Suspect]
  14. FLECAINIDE ACETATE [Concomitant]
  15. LEVALBUTEROL HCL [Concomitant]
  16. PREDNISONE TAB [Concomitant]

REACTIONS (11)
  - ALPHA HAEMOLYTIC STREPTOCOCCAL INFECTION [None]
  - ASPIRATION [None]
  - BLOOD PRESSURE DIASTOLIC DECREASED [None]
  - CATHETER RELATED INFECTION [None]
  - CLEFT PALATE [None]
  - DISEASE PROGRESSION [None]
  - DYSPHAGIA [None]
  - ESCHERICHIA INFECTION [None]
  - HEART RATE INCREASED [None]
  - PSEUDOMONAS INFECTION [None]
  - RESPIRATORY FAILURE [None]
